FAERS Safety Report 21025290 (Version 2)
Quarter: 2022Q3

REPORT INFORMATION
  Report Type: Spontaneous
  Country: JP (occurrence: JP)
  Receive Date: 20220630
  Receipt Date: 20220704
  Transmission Date: 20221026
  Serious: Yes (Life-Threatening, Hospitalization, Other)
  Sender: FDA-Public Use
  Company Number: JP-NBI-S202200139BIPI

PATIENT
  Age: 72 Year
  Sex: Male

DRUGS (4)
  1. OFEV [Suspect]
     Active Substance: NINTEDANIB
     Indication: Hypersensitivity pneumonitis
     Route: 065
  2. PREDNISOLONE [Concomitant]
     Active Substance: PREDNISOLONE
     Indication: Hypersensitivity pneumonitis
     Route: 065
  3. PREDNISOLONE [Concomitant]
     Active Substance: PREDNISOLONE
     Route: 065
  4. TACROLIMUS [Concomitant]
     Active Substance: TACROLIMUS
     Indication: Hypersensitivity pneumonitis
     Route: 065

REACTIONS (5)
  - Interstitial lung disease [Unknown]
  - Pneumothorax spontaneous [Unknown]
  - Infectious pleural effusion [Unknown]
  - Subcutaneous emphysema [Recovering/Resolving]
  - Dyspnoea [Recovering/Resolving]
